FAERS Safety Report 8258916-4 (Version None)
Quarter: 2012Q2

REPORT INFORMATION
  Report Type: 
  Country: None (occurrence: None)
  Receive Date: 20120403
  Receipt Date: 20120403
  Transmission Date: 20120825
  Serious: No
  Sender: FDA-Public Use
  Company Number: None

PATIENT
  Age: 64 Year
  Sex: Male
  Weight: 79.9 kg

DRUGS (1)
  1. ZOLPIDEM [Suspect]
     Indication: INSOMNIA
     Dosage: 5 MG AT BEDTIME PO
     Route: 048
     Dates: start: 20111217, end: 20111218

REACTIONS (8)
  - ABNORMAL BEHAVIOUR [None]
  - DELIRIUM [None]
  - MENTAL STATUS CHANGES [None]
  - RESTLESSNESS [None]
  - URINARY INCONTINENCE [None]
  - CONFUSIONAL STATE [None]
  - ABNORMAL DREAMS [None]
  - SOMNAMBULISM [None]
